FAERS Safety Report 11090604 (Version 1)
Quarter: 2015Q2

REPORT INFORMATION
  Report Type: Spontaneous
  Country: PL (occurrence: PL)
  Receive Date: 20150505
  Receipt Date: 20150505
  Transmission Date: 20150821
  Serious: Yes (Other)
  Sender: FDA-Public Use
  Company Number: PHHY2015PL052386

PATIENT
  Age: 49 Year
  Sex: Female

DRUGS (1)
  1. ZOLEDRONATE [Suspect]
     Active Substance: ZOLEDRONIC ACID
     Indication: PRODUCT USED FOR UNKNOWN INDICATION
     Route: 051

REACTIONS (7)
  - Tooth loss [Unknown]
  - Toothache [Unknown]
  - Impaired healing [Unknown]
  - Bone loss [Recovering/Resolving]
  - Osteonecrosis of jaw [Unknown]
  - Loose tooth [Unknown]
  - Tooth abscess [Unknown]
